FAERS Safety Report 9781556 (Version 1)
Quarter: 2013Q4

REPORT INFORMATION
  Report Type: Spontaneous
  Country: US (occurrence: None)
  Receive Date: 20131223
  Receipt Date: 20131223
  Transmission Date: 20140711
  Serious: Yes (Hospitalization)
  Sender: FDA-Public Use
  Company Number: None

PATIENT
  Age: 63 Year
  Sex: Male
  Weight: 89.1 kg

DRUGS (2)
  1. CLOPIDOGREL [Suspect]
     Indication: STENT PLACEMENT
     Route: 048
     Dates: start: 20090821, end: 20131209
  2. INDOMETHACIN [Suspect]
     Indication: PAIN
     Route: 048
     Dates: start: 20131121, end: 20131209

REACTIONS (1)
  - Gastric haemorrhage [None]
